FAERS Safety Report 4405184-7 (Version None)
Quarter: 2004Q3

REPORT INFORMATION
  Report Type: 
  Country: None (occurrence: None)
  Receive Date: 20040709
  Receipt Date: 20040709
  Transmission Date: 20050211
  Serious: Yes (Other)
  Sender: FDA-Public Use
  Company Number: None

PATIENT
  Age: 2 Day
  Sex: Male
  Weight: 2.835 kg

DRUGS (1)
  1. INOMAX [Suspect]
     Indication: NEONATAL RESPIRATORY DISTRESS SYNDROME
     Dosage: 20 PPM; CONT; INH
     Route: 055
     Dates: start: 20040624, end: 20040624

REACTIONS (2)
  - DEATH NEONATAL [None]
  - MEDICATION ERROR [None]
